FAERS Safety Report 7796536-6 (Version None)
Quarter: 2011Q4

REPORT INFORMATION
  Report Type: 
  Country: None (occurrence: None)
  Receive Date: 20111005
  Receipt Date: 20110930
  Transmission Date: 20120403
  Serious: No
  Sender: FDA-Public Use
  Company Number: US-PFIZER INC-2011234264

PATIENT
  Sex: Female
  Weight: 79.365 kg

DRUGS (1)
  1. IBUPROFEN (ADVIL) [Suspect]
     Indication: ARTHRALGIA
     Dosage: 200 MG,DAILY
     Route: 048
     Dates: start: 20110930

REACTIONS (1)
  - PRODUCT TASTE ABNORMAL [None]
